FAERS Safety Report 6607591-0 (Version None)
Quarter: 2010Q1

REPORT INFORMATION
  Report Type: 
  Country: None (occurrence: None)
  Receive Date: 20100301
  Receipt Date: 20100222
  Transmission Date: 20100710
  Serious: Yes (Other)
  Sender: FDA-Public Use
  Company Number: CHPA2010US03603

PATIENT
  Age: 77 Year
  Sex: Female

DRUGS (2)
  1. PREVACID 24 HR [Suspect]
     Indication: REFLUX OESOPHAGITIS
     Dosage: 30 MG, QD
     Route: 048
     Dates: start: 20100219
  2. PREVACID 24 HR [Suspect]
     Indication: DYSPEPSIA

REACTIONS (4)
  - CHEST PAIN [None]
  - DYSPNOEA [None]
  - OFF LABEL USE [None]
  - OVERDOSE [None]
